FAERS Safety Report 7983180-0 (Version None)
Quarter: 2011Q4

REPORT INFORMATION
  Report Type: 
  Country: None (occurrence: None)
  Receive Date: 20111215
  Receipt Date: 20111205
  Transmission Date: 20120403
  Serious: Yes (Death)
  Sender: FDA-Public Use
  Company Number: US-ACTELION-A-NJ2011-56593

PATIENT

DRUGS (3)
  1. VENTAVIS [Suspect]
     Indication: PULMONARY ARTERIAL HYPERTENSION
     Dosage: UNK
     Route: 055
     Dates: start: 20100709
  2. REVATIO [Concomitant]
  3. OXYGEN [Concomitant]

REACTIONS (6)
  - DEATH [None]
  - DYSPNOEA [None]
  - HEADACHE [None]
  - INFUSION SITE PAIN [None]
  - DIZZINESS [None]
  - HYPOTENSION [None]
